FAERS Safety Report 23437916 (Version 2)
Quarter: 2024Q1

REPORT INFORMATION
  Report Type: Spontaneous
  Country: US (occurrence: US)
  Receive Date: 20240124
  Receipt Date: 20240226
  Transmission Date: 20240410
  Serious: No
  Sender: FDA-Public Use
  Company Number: US-MYLANLABS-2024M1003162

PATIENT
  Age: 69 Year
  Sex: Female

DRUGS (1)
  1. ESTRADIOL TRANSDERMAL SYSTEM [Suspect]
     Active Substance: ESTRADIOL
     Indication: Product used for unknown indication
     Dosage: 0.1 MILLIGRAM, QD (ONCE WEEKLY)
     Route: 062

REACTIONS (6)
  - Hot flush [Unknown]
  - Application site urticaria [Unknown]
  - Application site pruritus [Unknown]
  - Drug ineffective [Unknown]
  - Product adhesion issue [Unknown]
  - Product size issue [Unknown]
